FAERS Safety Report 5287624-7 (Version None)
Quarter: 2007Q1

REPORT INFORMATION
  Report Type: 
  Country: None (occurrence: None)
  Receive Date: 20070105
  Receipt Date: 20061009
  Transmission Date: 20070707
  Serious: Yes (Other)
  Sender: FDA-Public Use
  Company Number: 31209

PATIENT
  Age: 39 Year
  Sex: Female

DRUGS (2)
  1. OCTREOTIDE ACETATE [Suspect]
     Indication: INFREQUENT BOWEL MOVEMENTS
     Dosage: 50 MCG DAILY FOR 10 DAYS
     Dates: start: 20060929, end: 20061008
  2. OCTREOTIDE ACETATE [Suspect]
     Indication: INFREQUENT BOWEL MOVEMENTS
     Dosage: 50 MCG DAILY FOR 10 DAYS
     Dates: start: 20060929, end: 20061008

REACTIONS (1)
  - RASH [None]
